FAERS Safety Report 17151658 (Version 1)
Quarter: 2019Q4

REPORT INFORMATION
  Report Type: Spontaneous
  Country: CA (occurrence: CA)
  Receive Date: 20191213
  Receipt Date: 20191213
  Transmission Date: 20200122
  Serious: Yes (Other)
  Sender: FDA-Public Use
  Company Number: CA-PFIZER INC-2019536967

PATIENT
  Age: 36 Year
  Sex: Male
  Weight: 91 kg

DRUGS (1)
  1. PROPOFOL. [Suspect]
     Active Substance: PROPOFOL
     Indication: ANAESTHETIC PREMEDICATION
     Dosage: 30 MG, UNK
     Route: 042

REACTIONS (8)
  - Feeling cold [Unknown]
  - Feeling hot [Unknown]
  - Heart rate increased [Unknown]
  - Anxiety [Unknown]
  - Somnolence [Unknown]
  - Hyperhidrosis [Unknown]
  - Panic attack [Unknown]
  - Tremor [Unknown]
